FAERS Safety Report 4701041-7 (Version None)
Quarter: 2005Q2

REPORT INFORMATION
  Report Type: 
  Country: None (occurrence: None)
  Receive Date: 20050624
  Receipt Date: 20040927
  Transmission Date: 20051028
  Serious: Yes (Life-Threatening, Hospitalization)
  Sender: FDA-Public Use
  Company Number: 381639

PATIENT
  Age: 51 Year
  Sex: Female
  Weight: 78 kg

DRUGS (9)
  1. XELODA [Suspect]
     Indication: BREAST CANCER
     Dosage: 1500 MG
     Dates: start: 20040803, end: 20040817
  2. DOCETAXEL (DOCETAXEL) [Concomitant]
  3. TRASTUZUMAB (TRASTUZUMAB) [Concomitant]
  4. ZOLEDRONATE (ZOLEDRONIC ACID) [Concomitant]
  5. SYNTHROID [Concomitant]
  6. COMPAZINE [Concomitant]
  7. VICODIN [Concomitant]
  8. LASIX [Concomitant]
  9. K-DUR 10 [Concomitant]

REACTIONS (21)
  - ABDOMINAL DISTENSION [None]
  - BLISTER [None]
  - BLOOD CREATININE ABNORMAL [None]
  - BLOOD UREA ABNORMAL [None]
  - DEHYDRATION [None]
  - DIARRHOEA [None]
  - DYSPHAGIA [None]
  - DYSURIA [None]
  - GASTROINTESTINAL MOTILITY DISORDER [None]
  - INTESTINAL FUNCTIONAL DISORDER [None]
  - MUCOSAL INFLAMMATION [None]
  - NAUSEA [None]
  - OEDEMA PERIPHERAL [None]
  - ORAL INTAKE REDUCED [None]
  - PAIN IN EXTREMITY [None]
  - PALMAR ERYTHEMA [None]
  - PALMAR-PLANTAR ERYTHRODYSAESTHESIA SYNDROME [None]
  - PANCYTOPENIA [None]
  - RENAL FAILURE [None]
  - SEPSIS [None]
  - STOMATITIS [None]
